FAERS Safety Report 8922928 (Version 1)
Quarter: 2012Q4

REPORT INFORMATION
  Report Type: 
  Country: US (occurrence: US)
  Receive Date: 20121123
  Receipt Date: 20121123
  Transmission Date: 20130627
  Serious: No
  Sender: FDA-Public Use
  Company Number: US-009507513-1211USA004745

PATIENT
  Sex: Female

DRUGS (1)
  1. AZASITE [Suspect]
     Indication: ROSACEA
     Dosage: 1 drop per eye once daily at night
     Route: 047
     Dates: start: 20121026

REACTIONS (4)
  - Inappropriate schedule of drug administration [Unknown]
  - Wrong technique in drug usage process [Unknown]
  - No adverse event [Unknown]
  - Product packaging quantity issue [Unknown]
